FAERS Safety Report 5190671-7 (Version None)
Quarter: 2006Q4

REPORT INFORMATION
  Report Type: 
  Country: None (occurrence: None)
  Receive Date: 20061222
  Receipt Date: 20061114
  Transmission Date: 20070319
  Serious: No
  Sender: FDA-Public Use
  Company Number: US-BRISTOL-MYERS SQUIBB COMPANY-13578737

PATIENT
  Age: 64 Year
  Sex: Female
  Weight: 59 kg

DRUGS (9)
  1. ORENCIA [Suspect]
     Indication: RHEUMATOID ARTHRITIS
     Route: 042
     Dates: start: 20061012
  2. ARAVA [Concomitant]
  3. ESTRADIOL INJ [Concomitant]
  4. PROGESTERONE [Concomitant]
  5. GABAPENTIN [Concomitant]
  6. PLAQUENIL [Concomitant]
  7. CALCIUM [Concomitant]
  8. VITAMIN B COMPLEX CAP [Concomitant]
  9. BIOTIN [Concomitant]

REACTIONS (1)
  - PAIN IN EXTREMITY [None]
